FAERS Safety Report 25620298 (Version 1)
Quarter: 2025Q3

REPORT INFORMATION
  Report Type: Report from Study
  Country: US (occurrence: US)
  Receive Date: 20250730
  Receipt Date: 20250730
  Transmission Date: 20251021
  Serious: Yes (Death, Other)
  Sender: ACADIA PHARMACEUTICALS
  Company Number: US-ACADIA PHARMACEUTICALS INC.-ACA-2025-PIM-008718

PATIENT
  Sex: Male

DRUGS (12)
  1. NUPLAZID [Suspect]
     Active Substance: PIMAVANSERIN TARTRATE
     Indication: Parkinson^s disease
     Dosage: 34 MILLIGRAM, QD
     Route: 048
  2. ZITHROMAX [Concomitant]
     Active Substance: AZITHROMYCIN DIHYDRATE
  3. TAMSULOSIN [Concomitant]
     Active Substance: TAMSULOSIN
  4. TOPIRAMATE [Concomitant]
     Active Substance: TOPIRAMATE
  5. CARBIDOPA LEVODOPA [Concomitant]
     Active Substance: CARBIDOPA\LEVODOPA
  6. WARFARIN [Concomitant]
     Active Substance: WARFARIN
  7. KLONOPIN [Concomitant]
     Active Substance: CLONAZEPAM
  8. COLACE [Concomitant]
     Active Substance: DOCUSATE SODIUM
  9. LUNESTA [Concomitant]
     Active Substance: ESZOPICLONE
  10. CRESTOR [Concomitant]
     Active Substance: ROSUVASTATIN CALCIUM
  11. IPRATROPIUM [Concomitant]
     Active Substance: IPRATROPIUM
  12. VITAMIN B12 [Concomitant]
     Active Substance: CYANOCOBALAMIN

REACTIONS (1)
  - Death [Fatal]
